FAERS Safety Report 6690721-2 (Version None)
Quarter: 2010Q2

REPORT INFORMATION
  Report Type: 
  Country: None (occurrence: None)
  Receive Date: 20100420
  Receipt Date: 20100420
  Transmission Date: 20101027
  Serious: Yes (Death, Other)
  Sender: FDA-Public Use
  Company Number: None

PATIENT
  Sex: Male

DRUGS (2)
  1. SERTRALINE HCL [Suspect]
     Dosage: 50MG TWICE A DAY BY MOUTH LAST DISPENSED 01/08/2010
     Route: 048
     Dates: end: 20100108
  2. ANDROGEL [Suspect]
     Dosage: 2.5GM ONCE DAILY TOPICAL  LAST DISPENSED 01/25/2010
     Route: 061
     Dates: end: 20100125

REACTIONS (1)
  - DEATH [None]
